FAERS Safety Report 9681724 (Version 2)
Quarter: 2014Q1

REPORT INFORMATION
  Report Type: Spontaneous
  Country: US (occurrence: US)
  Receive Date: 20131111
  Receipt Date: 20140226
  Transmission Date: 20141002
  Serious: Yes (Death, Hospitalization)
  Sender: FDA-Public Use
  Company Number: US-GLAXOSMITHKLINE-A1049063A

PATIENT
  Age: 9 Year
  Sex: Male

DRUGS (4)
  1. FLOLAN [Suspect]
     Indication: COR PULMONALE CHRONIC
     Dosage: 19.3NGKM CONTINUOUS
     Route: 042
     Dates: start: 20060722
  2. REVATIO [Concomitant]
  3. WARFARIN [Concomitant]
  4. LETAIRIS [Concomitant]

REACTIONS (2)
  - Death [Fatal]
  - Investigation [Unknown]
